FAERS Safety Report 9944707 (Version 1)
Quarter: 2014Q1

REPORT INFORMATION
  Report Type: Spontaneous
  Country: US (occurrence: US)
  Receive Date: 20140303
  Receipt Date: 20140303
  Transmission Date: 20141002
  Serious: No
  Sender: FDA-Public Use
  Company Number: US-ABBVIE-13P-163-1053918-00

PATIENT
  Age: 69 Year
  Sex: Female
  Weight: 78.09 kg

DRUGS (6)
  1. HUMIRA [Suspect]
     Indication: CROHN^S DISEASE
     Dates: start: 2008
  2. AZATHIOPRINE [Concomitant]
     Indication: CROHN^S DISEASE
  3. NEXIUM [Concomitant]
     Indication: GASTROOESOPHAGEAL REFLUX DISEASE
  4. LOMOTIL [Concomitant]
     Indication: DIARRHOEA
  5. FLONASE [Concomitant]
     Indication: SEASONAL ALLERGY
  6. VITAMIN B12 [Concomitant]
     Indication: VITAMIN SUPPLEMENTATION

REACTIONS (2)
  - Device malfunction [Unknown]
  - Injection site bruising [Not Recovered/Not Resolved]
